FAERS Safety Report 19590069 (Version 4)
Quarter: 2022Q1

REPORT INFORMATION
  Report Type: Spontaneous
  Country: US (occurrence: US)
  Receive Date: 20210721
  Receipt Date: 20220131
  Transmission Date: 20220423
  Serious: Yes (Other)
  Sender: FDA-Public Use
  Company Number: US-ALLERGAN-2125637US

PATIENT
  Sex: Female
  Weight: 83.9 kg

DRUGS (10)
  1. RESTASIS [Interacting]
     Active Substance: CYCLOSPORINE
     Indication: Dry eye
     Dosage: 2 GTT, Q12H
     Route: 047
     Dates: start: 202107
  2. NORCO [Suspect]
     Active Substance: ACETAMINOPHEN\HYDROCODONE BITARTRATE
     Indication: Pain
     Dosage: 2 DF, Q4HR
     Dates: end: 20210705
  3. REFRESH OPTIVE GEL DROPS [Suspect]
     Active Substance: CARBOXYMETHYLCELLULOSE SODIUM\GLYCERIN
     Indication: Product used for unknown indication
     Dosage: 2 GTT, BID
     Route: 047
     Dates: start: 20210711
  4. TYLENOL [Suspect]
     Active Substance: ACETAMINOPHEN
     Indication: Pain
     Dosage: 2 DF, Q6HR
     Dates: end: 20210707
  5. TYLENOL [Suspect]
     Active Substance: ACETAMINOPHEN
     Indication: Swelling of eyelid
  6. HYDROCORTISONE [Suspect]
     Active Substance: HYDROCORTISONE
     Indication: Product used for unknown indication
     Dosage: UNK
     Dates: end: 20210707
  7. HYDROCORTISONE [Suspect]
     Active Substance: HYDROCORTISONE
     Indication: Product used for unknown indication
     Dosage: UNK
     Dates: end: 20210708
  8. ATENOLOL [Concomitant]
     Active Substance: ATENOLOL
     Indication: Blood pressure abnormal
     Dosage: 25 MG, QD, STARTED OVER 5 YEARS AGO
     Route: 048
  9. MELOXICAM [Concomitant]
     Active Substance: MELOXICAM
     Indication: Arthritis
     Dosage: 7.5 MG ONLY ON MONDAY, TUESDAY, WEDNESDAY AND THURSDAY, STARTED 3 YEARS AGO
     Route: 048
  10. LEVOTHYROXINE [Concomitant]
     Active Substance: LEVOTHYROXINE
     Indication: Hypothyroidism
     Dosage: 112 MG, QAM, STARTED 12 YEARS AGO
     Route: 048

REACTIONS (6)
  - Knee arthroplasty [Unknown]
  - Drug-device interaction [Unknown]
  - Cellulitis [Unknown]
  - Angioedema [Recovering/Resolving]
  - Eye irritation [Not Recovered/Not Resolved]
  - Eye pain [Recovered/Resolved]

NARRATIVE: CASE EVENT DATE: 20210628
